FAERS Safety Report 16399233 (Version 1)
Quarter: 2019Q2

REPORT INFORMATION
  Report Type: Report from Study
  Country: AT (occurrence: AT)
  Receive Date: 20190606
  Receipt Date: 20190606
  Transmission Date: 20190711
  Serious: Yes (Other)
  Sender: FDA-Public Use
  Company Number: AT-ROCHE-2333070

PATIENT

DRUGS (2)
  1. HEPARIN [Suspect]
     Active Substance: HEPARIN SODIUM
     Indication: PERIPHERAL ARTERY OCCLUSION
     Dosage: 2000 IU FOLLOWED BY 3000 IU
     Route: 013
  2. ALTEPLASE. [Suspect]
     Active Substance: ALTEPLASE
     Indication: PERIPHERAL ARTERY OCCLUSION
     Route: 013

REACTIONS (2)
  - Hypertensive crisis [Unknown]
  - Ischaemic cerebral infarction [Unknown]
